FAERS Safety Report 17739889 (Version 1)
Quarter: 2020Q2

REPORT INFORMATION
  Report Type: Spontaneous
  Country: US (occurrence: US)
  Receive Date: 20200504
  Receipt Date: 20200504
  Transmission Date: 20200714
  Serious: No
  Sender: FDA-Public Use
  Company Number: US-TEVA-2020-US-1231236

PATIENT
  Age: 47 Year
  Sex: Female

DRUGS (7)
  1. BELSOMRA [Concomitant]
     Active Substance: SUVOREXANT
  2. NASONEX [Concomitant]
     Active Substance: MOMETASONE FUROATE
  3. AJOVY [Suspect]
     Active Substance: FREMANEZUMAB-VFRM
     Indication: MIGRAINE
     Route: 065
     Dates: start: 202004
  4. BREO ELLIPTA [Concomitant]
     Active Substance: FLUTICASONE FUROATE\VILANTEROL TRIFENATATE
     Dosage: DAILY
  5. SPIRIVA [Concomitant]
     Active Substance: TIOTROPIUM BROMIDE MONOHYDRATE
  6. XOPENEX [Concomitant]
     Active Substance: LEVALBUTEROL HYDROCHLORIDE
  7. MULTIGEN WITH FOLIC ACID [Concomitant]

REACTIONS (1)
  - Injection site pain [Recovered/Resolved]
